FAERS Safety Report 5135987-5 (Version None)
Quarter: 2006Q4

REPORT INFORMATION
  Report Type: 
  Country: None (occurrence: None)
  Receive Date: 20061020
  Receipt Date: 20061012
  Transmission Date: 20070319
  Serious: Yes (Hospitalization, Other)
  Sender: FDA-Public Use
  Company Number: 2006SP002636

PATIENT
  Age: 3 Month
  Sex: Female
  Weight: 11 kg

DRUGS (1)
  1. BETAMETHASONE [Suspect]

REACTIONS (7)
  - CRYING [None]
  - CSF TEST ABNORMAL [None]
  - CUSHINGOID [None]
  - DRUG ABUSER [None]
  - FONTANELLE BULGING [None]
  - HAEMOPHILUS INFECTION [None]
  - PARTIAL SEIZURES [None]
